FAERS Safety Report 4327763-8 (Version None)
Quarter: 2004Q1

REPORT INFORMATION
  Report Type: 
  Country: None (occurrence: None)
  Receive Date: 20040325
  Receipt Date: 20040315
  Transmission Date: 20041129
  Serious: Yes (Death, Hospitalization)
  Sender: FDA-Public Use
  Company Number: US-JNJFOC-20031202561

PATIENT
  Age: 11 Year
  Sex: Female

DRUGS (2)
  1. TOPAMAX [Suspect]
     Indication: EPILEPSY
     Dosage: ORAL
  2. DEPAKOTE [Concomitant]

REACTIONS (3)
  - ANHIDROSIS [None]
  - INFLUENZA [None]
  - STATUS EPILEPTICUS [None]
